FAERS Safety Report 5374150-X (Version None)
Quarter: 2007Q2

REPORT INFORMATION
  Report Type: 
  Country: None (occurrence: None)
  Receive Date: 20070627
  Receipt Date: 20061202
  Transmission Date: 20071010
  Serious: No
  Sender: FDA-Public Use
  Company Number: 473804

PATIENT
  Sex: Female
  Weight: 69.9 kg

DRUGS (1)
  1. XELODA [Suspect]
     Indication: COLON CANCER
     Dosage: 1500 MG 2 PER DAY ORAL
     Route: 048
     Dates: start: 20061115, end: 20061124

REACTIONS (5)
  - ABDOMINAL PAIN [None]
  - DEHYDRATION [None]
  - DIARRHOEA HAEMORRHAGIC [None]
  - DRUG TOXICITY [None]
  - VOMITING [None]
